FAERS Safety Report 5853649-3 (Version None)
Quarter: 2008Q3

REPORT INFORMATION
  Report Type: 
  Country: None (occurrence: None)
  Receive Date: 20080822
  Receipt Date: 20080813
  Transmission Date: 20090109
  Serious: No
  Sender: FDA-Public Use
  Company Number: GB-ASTRAZENECA-2008GB01466

PATIENT
  Age: 30370 Day
  Sex: Male

DRUGS (15)
  1. SEROQUEL [Suspect]
     Indication: PSYCHOTIC DISORDER
     Route: 048
     Dates: start: 20080710
  2. SEROQUEL [Suspect]
     Indication: AGITATION
     Route: 048
     Dates: start: 20080710
  3. SEROQUEL [Suspect]
     Route: 048
     Dates: start: 20080721
  4. SEROQUEL [Suspect]
     Route: 048
     Dates: start: 20080721
  5. SEROQUEL [Suspect]
     Route: 048
     Dates: start: 20080721
  6. SEROQUEL [Suspect]
     Route: 048
     Dates: start: 20080721
  7. SEROQUEL [Suspect]
     Dosage: 70 MG MANE, 50 MG NOCTE
     Route: 048
     Dates: start: 20080724
  8. SEROQUEL [Suspect]
     Dosage: 70 MG MANE, 50 MG NOCTE
     Route: 048
     Dates: start: 20080724
  9. SEROQUEL [Suspect]
     Route: 048
     Dates: start: 20080728
  10. SEROQUEL [Suspect]
     Route: 048
     Dates: start: 20080728
  11. GABAPENTIN [Concomitant]
  12. SINEMET CR [Concomitant]
     Indication: PARKINSONISM
     Route: 048
  13. SERTRALINE [Concomitant]
     Indication: DEPRESSION
     Route: 048
  14. ENOXAPARIN SODIUM [Concomitant]
     Indication: PROPHYLAXIS
     Route: 058
  15. ALPRAZOLAM [Concomitant]
     Indication: AGITATION
     Route: 048

REACTIONS (1)
  - NEUTROPENIA [None]
